FAERS Safety Report 15144556 (Version 1)
Quarter: 2018Q3

REPORT INFORMATION
  Report Type: Spontaneous
  Country: FR (occurrence: FR)
  Receive Date: 20180713
  Receipt Date: 20180713
  Transmission Date: 20181010
  Serious: Yes (Other)
  Sender: FDA-Public Use
  Company Number: FR-MYLANLABS-2018M1050804

PATIENT
  Age: 32 Year
  Sex: Female

DRUGS (2)
  1. ANASTROZOLE. [Suspect]
     Active Substance: ANASTROZOLE
     Indication: HER-2 POSITIVE BREAST CANCER
     Route: 065
  2. TRIPTORELIN [Suspect]
     Active Substance: TRIPTORELIN
     Indication: HER-2 POSITIVE BREAST CANCER
     Route: 030

REACTIONS (1)
  - Drug ineffective [Recovered/Resolved]
